FAERS Safety Report 22130603 (Version 1)
Quarter: 2023Q1

REPORT INFORMATION
  Report Type: Spontaneous
  Country: IR (occurrence: IR)
  Receive Date: 20230323
  Receipt Date: 20230323
  Transmission Date: 20230417
  Serious: Yes (Hospitalization, Other)
  Sender: FDA-Public Use
  Company Number: IR-PFIZER INC-PV202300053259

PATIENT
  Age: 18 Year
  Sex: Female

DRUGS (1)
  1. TOFACITINIB CITRATE [Suspect]
     Active Substance: TOFACITINIB CITRATE
     Dosage: 5 MG, DAILY

REACTIONS (5)
  - Drug-induced liver injury [Unknown]
  - Acute hepatic failure [Unknown]
  - Cholestasis [Unknown]
  - Off label use [Unknown]
  - Drug effective for unapproved indication [Unknown]
